FAERS Safety Report 6700733-8 (Version None)
Quarter: 2010Q2

REPORT INFORMATION
  Report Type: 
  Country: None (occurrence: None)
  Receive Date: 20100428
  Receipt Date: 20100423
  Transmission Date: 20101027
  Serious: Yes (Life-Threatening, Other)
  Sender: FDA-Public Use
  Company Number: US-MERCK-1004USA01571

PATIENT
  Age: 55 Year
  Sex: Female
  Weight: 107 kg

DRUGS (2)
  1. SINGULAIR [Suspect]
     Indication: ASTHMA
     Route: 048
     Dates: start: 20090721, end: 20090730
  2. ADVAIR DISKUS 100/50 [Suspect]
     Route: 065
     Dates: start: 20090721, end: 20090730

REACTIONS (5)
  - DEPRESSION [None]
  - DIZZINESS [None]
  - HEADACHE [None]
  - NEGATIVE THOUGHTS [None]
  - RESPIRATORY DISORDER [None]
